FAERS Safety Report 7477204-7 (Version None)
Quarter: 2011Q2

REPORT INFORMATION
  Report Type: 
  Country: None (occurrence: None)
  Receive Date: 20110512
  Receipt Date: 20110314
  Transmission Date: 20111010
  Serious: No
  Sender: FDA-Public Use
  Company Number: US-NOVEN-11US001983

PATIENT
  Sex: Male

DRUGS (1)
  1. DAYTRANA [Suspect]
     Indication: PRODUCT USED FOR UNKNOWN INDICATION
     Dosage: 10 MG, QD
     Route: 062
     Dates: start: 20110307

REACTIONS (7)
  - CRYING [None]
  - DECREASED APPETITE [None]
  - DRUG PRESCRIBING ERROR [None]
  - OFF LABEL USE [None]
  - EMOTIONAL DISTRESS [None]
  - MUSCLE TWITCHING [None]
  - TIC [None]
